FAERS Safety Report 8960375 (Version 3)
Quarter: 2013Q4

REPORT INFORMATION
  Report Type: Spontaneous
  Country: US (occurrence: US)
  Receive Date: 20121212
  Receipt Date: 20131202
  Transmission Date: 20140711
  Serious: Yes (Hospitalization)
  Sender: FDA-Public Use
  Company Number: US-BAYER-2012-129817

PATIENT
  Age: 23 Year
  Sex: Female
  Weight: 54.42 kg

DRUGS (3)
  1. YAZ [Suspect]
     Dosage: UNK
     Dates: start: 200710, end: 200805
  2. CIPROFLOXACIN [Concomitant]
     Dosage: UNK
  3. LORTAB [Concomitant]
     Dosage: UNK

REACTIONS (5)
  - Gallbladder injury [None]
  - Cholecystitis chronic [None]
  - Pain [None]
  - Injury [None]
  - Pain [None]
